FAERS Safety Report 6309112-9 (Version None)
Quarter: 2009Q3

REPORT INFORMATION
  Report Type: 
  Country: None (occurrence: None)
  Receive Date: 20090812
  Receipt Date: 20090729
  Transmission Date: 20100115
  Serious: Yes (Hospitalization)
  Sender: FDA-Public Use
  Company Number: 1000007104

PATIENT
  Age: 74 Year
  Sex: Female

DRUGS (2)
  1. FOSFOMYCIN (FOSFOMYCIN TROMETAMOL) (GRANULATE) [Suspect]
     Indication: URINARY TRACT INFECTION
     Dosage: 3 GM (3 GM,1 IN 1 D),ORAL
     Route: 048
     Dates: start: 20080401, end: 20080424
  2. TERALITHE [Suspect]
     Indication: BIPOLAR DISORDER
     Dosage: 1000 MG (250 MG,4 IN 1 D),ORAL
     Route: 048
     Dates: end: 20080424

REACTIONS (4)
  - BRADYCARDIA [None]
  - DIARRHOEA [None]
  - OVERDOSE [None]
  - SINOATRIAL BLOCK [None]
